FAERS Safety Report 8353518-3 (Version None)
Quarter: 2012Q2

REPORT INFORMATION
  Report Type: 
  Country: None (occurrence: None)
  Receive Date: 20120511
  Receipt Date: 20110509
  Transmission Date: 20120825
  Serious: No
  Sender: FDA-Public Use
  Company Number: US-GLAXOSMITHKLINE-A0926606A

PATIENT
  Age: 54 Year
  Sex: Female

DRUGS (6)
  1. TYKERB [Suspect]
     Indication: BREAST CANCER
     Dosage: 1250MG PER DAY
     Route: 048
     Dates: start: 20110301
  2. ANTIDEPRESSANT [Concomitant]
  3. XELODA [Concomitant]
  4. OMEPRAZOLE [Concomitant]
  5. HERCEPTIN [Concomitant]
     Route: 042
  6. ALLEGRA-D 12 HOUR [Concomitant]

REACTIONS (1)
  - DIARRHOEA [None]
